FAERS Safety Report 24673433 (Version 1)
Quarter: 2024Q4

REPORT INFORMATION
  Report Type: Report from Study
  Country: CA (occurrence: CA)
  Receive Date: 20241128
  Receipt Date: 20241128
  Transmission Date: 20250115
  Serious: No
  Sender: ROCHE
  Company Number: CA-ROCHE-10000116198

PATIENT
  Sex: Male

DRUGS (19)
  1. ENSPRYNG [Suspect]
     Active Substance: SATRALIZUMAB-MWGE
     Indication: Neuromyelitis optica spectrum disorder
     Dosage: 120 MG AT WEEKS 0, 2, AND 4 THEN EVERY 4 WEEKS
     Route: 058
     Dates: start: 20241018
  2. VITAMIN D3 [Concomitant]
     Active Substance: CHOLECALCIFEROL
  3. CALCIUM CARBONATE [Concomitant]
     Active Substance: CALCIUM CARBONATE
  4. PANTOPRAZOLE [Concomitant]
     Active Substance: PANTOPRAZOLE
  5. METFORMIN [Concomitant]
     Active Substance: METFORMIN HYDROCHLORIDE
     Dosage: 500 X2 DAYS
  6. HYDROMORPHONE [Concomitant]
     Active Substance: HYDROMORPHONE
  7. FUROSEMIDE [Concomitant]
     Active Substance: FUROSEMIDE
  8. SEPTRA [Concomitant]
     Active Substance: SULFAMETHOXAZOLE\TRIMETHOPRIM
     Dosage: 800 AND 160MG
  9. VORICONAZOLE [Concomitant]
     Active Substance: VORICONAZOLE
     Dosage: 200MG X2
  10. VALACYCLOVIR [Concomitant]
     Active Substance: VALACYCLOVIR HYDROCHLORIDE
  11. ELTROMBOPAG [Concomitant]
     Active Substance: ELTROMBOPAG
  12. LATANOPROST [Concomitant]
     Active Substance: LATANOPROST
  13. AZOPT [Concomitant]
     Active Substance: BRINZOLAMIDE
  14. PREDNISONE [Concomitant]
     Active Substance: PREDNISONE
  15. ONDANSETRON [Concomitant]
     Active Substance: ONDANSETRON
  16. BACLOFEN [Concomitant]
     Active Substance: BACLOFEN
  17. CUVITRU [Concomitant]
     Active Substance: HUMAN IMMUNOGLOBULIN G
  18. DULOXETINE [Concomitant]
     Active Substance: DULOXETINE
  19. DALTEPARIN [Concomitant]
     Active Substance: DALTEPARIN

REACTIONS (2)
  - Fluid retention [Not Recovered/Not Resolved]
  - Liver disorder [Unknown]
